FAERS Safety Report 14558548 (Version 2)
Quarter: 2018Q1

REPORT INFORMATION
  Report Type: Spontaneous
  Country: UA (occurrence: UA)
  Receive Date: 20180221
  Receipt Date: 20180321
  Transmission Date: 20180509
  Serious: Yes (Hospitalization, Other)
  Sender: FDA-Public Use
  Company Number: PHHY2018UA025375

PATIENT
  Age: 40 Year
  Sex: Male
  Weight: 52 kg

DRUGS (5)
  1. PACLITAXEL EBEWE [Suspect]
     Active Substance: PACLITAXEL
     Dosage: 140 MG, ONCE (STARTED ON 15TH DAY AFTER INITIAL AND STOPPED ON SAME DAY)
     Route: 042
  2. PACLITAXEL EBEWE [Suspect]
     Active Substance: PACLITAXEL
     Dosage: 140 MG, ONCE (STARTED ON 8TH DAY AFTER INITIAL DOSE AND STOPPED ON SAME DAY)
     Route: 042
  3. PACLITAXEL EBEWE [Suspect]
     Active Substance: PACLITAXEL
     Indication: GASTRIC CANCER STAGE IV
     Dosage: 140 MG, ONCE
     Route: 042
     Dates: start: 20171206, end: 20171206
  4. PACLITAXEL EBEWE [Suspect]
     Active Substance: PACLITAXEL
     Dosage: 140 MG, ONCE
     Route: 042
     Dates: start: 20180118, end: 20180118
  5. PACLITAXEL EBEWE [Suspect]
     Active Substance: PACLITAXEL
     Dosage: 140 MG, ONCE
     Route: 042
     Dates: start: 20180111, end: 20180111

REACTIONS (3)
  - Drug ineffective for unapproved indication [Not Recovered/Not Resolved]
  - Product use in unapproved indication [Unknown]
  - Ascites [Recovering/Resolving]

NARRATIVE: CASE EVENT DATE: 20180118
